FAERS Safety Report 9644571 (Version 2)
Quarter: 2013Q4

REPORT INFORMATION
  Report Type: Spontaneous
  Country: AU (occurrence: AU)
  Receive Date: 20131025
  Receipt Date: 20131108
  Transmission Date: 20140711
  Serious: Yes (Hospitalization, Other)
  Sender: FDA-Public Use
  Company Number: AU-RANBAXY-2013RR-74559

PATIENT
  Age: 47 Year
  Sex: Female

DRUGS (2)
  1. ATORVASTATIN [Suspect]
     Indication: DYSLIPIDAEMIA
     Dosage: 80 MG/DAY
     Route: 048
  2. GEMFIBROZIL [Interacting]
     Indication: DYSLIPIDAEMIA
     Dosage: 600 MG, BID
     Route: 048

REACTIONS (4)
  - Rhabdomyolysis [Recovered/Resolved]
  - Myositis [Recovered/Resolved]
  - Renal failure acute [Recovered/Resolved]
  - Drug interaction [Recovered/Resolved]
